FAERS Safety Report 14239048 (Version 1)
Quarter: 2017Q4

REPORT INFORMATION
  Report Type: Spontaneous
  Country: US (occurrence: US)
  Receive Date: 20171127
  Receipt Date: 20171127
  Transmission Date: 20180321
  Serious: Yes (Other)
  Sender: FDA-Public Use
  Company Number: None

PATIENT
  Age: 59 Year
  Sex: Female
  Weight: 83.25 kg

DRUGS (7)
  1. DESVENLAFAXINE. [Suspect]
     Active Substance: DESVENLAFAXINE
     Indication: DEPRESSION
     Route: 048
     Dates: start: 20170410, end: 20170630
  2. REXULTI [Concomitant]
     Active Substance: BREXPIPRAZOLE
  3. NORTRIPTYLINE [Concomitant]
     Active Substance: NORTRIPTYLINE
  4. FLEXERIL [Concomitant]
     Active Substance: CYCLOBENZAPRINE HYDROCHLORIDE
  5. CELEBREX [Concomitant]
     Active Substance: CELECOXIB
  6. CLONAZEPAM. [Concomitant]
     Active Substance: CLONAZEPAM
  7. TRAMADOL. [Concomitant]
     Active Substance: TRAMADOL

REACTIONS (6)
  - Nightmare [None]
  - Abnormal behaviour [None]
  - Suicidal behaviour [None]
  - Depressed mood [None]
  - Crying [None]
  - Obsessive thoughts [None]

NARRATIVE: CASE EVENT DATE: 20170630
